FAERS Safety Report 7198227-1 (Version None)
Quarter: 2010Q4

REPORT INFORMATION
  Report Type: 
  Country: None (occurrence: None)
  Receive Date: 20101227
  Receipt Date: 20101216
  Transmission Date: 20110411
  Serious: Yes (Other)
  Sender: FDA-Public Use
  Company Number: CA-JNJFOC-20101207602

PATIENT
  Sex: Male
  Weight: 55 kg

DRUGS (2)
  1. REMICADE [Suspect]
     Indication: CROHN'S DISEASE
     Route: 042
  2. REMICADE [Suspect]
     Dosage: 6TH INFUSION
     Route: 042

REACTIONS (4)
  - BURNING SENSATION [None]
  - INFUSION RELATED REACTION [None]
  - LIP SWELLING [None]
  - PARAESTHESIA ORAL [None]
